FAERS Safety Report 14783703 (Version 1)
Quarter: 2018Q2

REPORT INFORMATION
  Report Type: Spontaneous
  Country: US (occurrence: US)
  Receive Date: 20180420
  Receipt Date: 20180420
  Transmission Date: 20180711
  Serious: No
  Sender: FDA-Public Use
  Company Number: US-PERRIGO-18US000665

PATIENT
  Sex: Female
  Weight: 54.42 kg

DRUGS (2)
  1. NAPROXEN SODIUM-PSEUDOEPHEDRINE HYDROCHLORIDE [Suspect]
     Active Substance: NAPROXEN SODIUM\PSEUDOEPHEDRINE HYDROCHLORIDE
     Indication: VIRAL UPPER RESPIRATORY TRACT INFECTION
     Dosage: 1 TABLET, EVERY 12 HOURS
     Route: 048
     Dates: start: 20180118, end: 20180118
  2. NAPROXEN SODIUM-PSEUDOEPHEDRINE HYDROCHLORIDE [Suspect]
     Active Substance: NAPROXEN SODIUM\PSEUDOEPHEDRINE HYDROCHLORIDE
     Indication: SINUS HEADACHE

REACTIONS (2)
  - Dry mouth [Recovered/Resolved]
  - Insomnia [Recovered/Resolved]

NARRATIVE: CASE EVENT DATE: 20180118
